FAERS Safety Report 4520908-6 (Version None)
Quarter: 2004Q4

REPORT INFORMATION
  Report Type: 
  Country: None (occurrence: None)
  Receive Date: 20041203
  Receipt Date: 20041124
  Transmission Date: 20050328
  Serious: Yes (Death)
  Sender: FDA-Public Use
  Company Number: 2004070031

PATIENT
  Age: 35 Year
  Sex: Female

DRUGS (2)
  1. ELETRIPTAN (ELETRIPTAN) [Suspect]
     Indication: MIGRAINE WITHOUT AURA
     Dosage: ONCE (40 MG), ORAL
     Route: 048
     Dates: start: 20040924, end: 20040924
  2. FLUVOXAMINE MALEATE [Suspect]
     Indication: DEPRESSIVE SYMPTOM
     Dosage: 25 MG (25 MG, 1 IN 1 D), ORAL
     Route: 048
     Dates: start: 20040921

REACTIONS (5)
  - DEPRESSION [None]
  - PULMONARY HAEMORRHAGE [None]
  - RENAL HAEMORRHAGE [None]
  - SUBARACHNOID HAEMORRHAGE [None]
  - SUDDEN DEATH [None]
